FAERS Safety Report 4512940-3 (Version None)
Quarter: 2004Q4

REPORT INFORMATION
  Report Type: 
  Country: None (occurrence: None)
  Receive Date: 20041124
  Receipt Date: 20041110
  Transmission Date: 20050328
  Serious: Yes (Other)
  Sender: FDA-Public Use
  Company Number: USA041183841

PATIENT
  Age: 87 Year
  Sex: Female

DRUGS (2)
  1. EVISTA [Suspect]
  2. FORTEO [Concomitant]

REACTIONS (3)
  - LYMPHOMA [None]
  - TREATMENT NONCOMPLIANCE [None]
  - VULVOVAGINAL DISCOMFORT [None]
